FAERS Safety Report 10016837 (Version 1)
Quarter: 2014Q1

REPORT INFORMATION
  Report Type: Report from Study
  Country: US (occurrence: US)
  Receive Date: 20140318
  Receipt Date: 20140318
  Transmission Date: 20141002
  Serious: Yes (Other)
  Sender: FDA-Public Use
  Company Number: US-ROCHE-1366613

PATIENT
  Age: 29 Year
  Sex: Female

DRUGS (3)
  1. XOLAIR [Suspect]
     Indication: ASTHMA
     Route: 058
     Dates: start: 2013
  2. ADVAIR [Concomitant]
  3. PROAIR (UNITED STATES) [Concomitant]

REACTIONS (3)
  - Asthma [Recovered/Resolved]
  - Panic reaction [Recovered/Resolved]
  - Nasopharyngitis [Recovered/Resolved]
